FAERS Safety Report 6500330-3 (Version None)
Quarter: 2009Q4

REPORT INFORMATION
  Report Type: 
  Country: None (occurrence: None)
  Receive Date: 20091127
  Receipt Date: 20090610
  Transmission Date: 20100525
  Serious: Yes (Disabling)
  Sender: FDA-Public Use
  Company Number: WAES 0703USA04384

PATIENT
  Age: 67 Year
  Sex: Female
  Weight: 73.0291 kg

DRUGS (9)
  1. FOSAMAX [Suspect]
     Indication: OSTEOPOROSIS
     Dosage: PO;35 MG/PO;70 MG/WKY/PO
     Route: 048
     Dates: start: 20010601, end: 20010101
  2. FOSAMAX [Suspect]
     Indication: OSTEOPOROSIS
     Dosage: PO;35 MG/PO;70 MG/WKY/PO
     Route: 048
     Dates: start: 20010401, end: 20010701
  3. FOSAMAX [Suspect]
     Indication: OSTEOPOROSIS
     Dosage: PO;35 MG/PO;70 MG/WKY/PO
     Route: 048
     Dates: start: 20010817, end: 20010912
  4. FOSAMAX [Suspect]
     Indication: OSTEOPOROSIS
     Dosage: PO;35 MG/PO;70 MG/WKY/PO
     Route: 048
     Dates: start: 20010913, end: 20060601
  5. DIPENTUM [Concomitant]
  6. EVISTA [Concomitant]
  7. FARESTON [Concomitant]
  8. ATENOLOL [Concomitant]
  9. AZATHIOPRINE [Concomitant]

REACTIONS (24)
  - ARTHROPATHY [None]
  - BODY HEIGHT DECREASED [None]
  - BONE DENSITY DECREASED [None]
  - CATARACT [None]
  - CHEST PAIN [None]
  - COLITIS ULCERATIVE [None]
  - CONSTIPATION [None]
  - CORNEAL INFECTION [None]
  - CYST [None]
  - DIARRHOEA [None]
  - EMOTIONAL DISTRESS [None]
  - FOOT FRACTURE [None]
  - HYPOTENSION [None]
  - INTERVERTEBRAL DISC DEGENERATION [None]
  - LEFT VENTRICULAR HYPERTROPHY [None]
  - LUMBAR SPINAL STENOSIS [None]
  - OSTEOMYELITIS [None]
  - OSTEONECROSIS [None]
  - PAIN IN EXTREMITY [None]
  - PYREXIA [None]
  - ROTATOR CUFF SYNDROME [None]
  - SACROILIITIS [None]
  - SPINAL COLUMN INJURY [None]
  - SPINAL COLUMN STENOSIS [None]
